FAERS Safety Report 7872704-X (Version None)
Quarter: 2011Q4

REPORT INFORMATION
  Report Type: 
  Country: None (occurrence: None)
  Receive Date: 20111030
  Receipt Date: 20110421
  Transmission Date: 20120403
  Serious: No
  Sender: FDA-Public Use
  Company Number: US-AMGEN-USASP2011010148

PATIENT
  Age: 50 Year
  Sex: Female

DRUGS (2)
  1. ENBREL [Suspect]
     Indication: PSORIATIC ARTHROPATHY
     Dosage: 50 MG, QWK
     Dates: start: 20110121
  2. METHOTREXATE [Concomitant]

REACTIONS (7)
  - ARTHRALGIA [None]
  - PNEUMONIA [None]
  - FATIGUE [None]
  - PSORIATIC ARTHROPATHY [None]
  - NASOPHARYNGITIS [None]
  - BRONCHITIS [None]
  - LYMPHADENOPATHY [None]
